FAERS Safety Report 7373572-5 (Version None)
Quarter: 2011Q1

REPORT INFORMATION
  Report Type: 
  Country: None (occurrence: None)
  Receive Date: 20110325
  Receipt Date: 20110315
  Transmission Date: 20110831
  Serious: Yes (Other)
  Sender: FDA-Public Use
  Company Number: GB-AMGEN-GBRSP2011015066

PATIENT
  Age: 51 Year
  Sex: Female
  Weight: 66.213 kg

DRUGS (6)
  1. FOLIC ACID [Concomitant]
     Dosage: 5 MG, 6 DAYS A WEEK
     Route: 048
     Dates: start: 20070301
  2. OMEPRAZOLE [Concomitant]
     Dosage: UNK
  3. ENBREL [Suspect]
     Indication: RHEUMATOID ARTHRITIS
     Dosage: UNK
  4. KETOPROFEN [Concomitant]
     Dosage: UNK
  5. METHOTREXATE [Concomitant]
     Indication: RHEUMATOID ARTHRITIS
     Dosage: 15 MG 1 IN 1 WEEK
     Route: 048
     Dates: start: 20070301
  6. HUMIRA [Suspect]
     Indication: RHEUMATOID ARTHRITIS
     Dosage: 40 MG, UNK
     Route: 058
     Dates: start: 20090201

REACTIONS (3)
  - RHEUMATOID ARTHRITIS [None]
  - DRUG INEFFECTIVE [None]
  - DRUG HYPERSENSITIVITY [None]
